FAERS Safety Report 16850671 (Version 1)
Quarter: 2019Q3

REPORT INFORMATION
  Report Type: Spontaneous
  Country: US (occurrence: US)
  Receive Date: 20190925
  Receipt Date: 20190925
  Transmission Date: 20191005
  Serious: No
  Sender: FDA-Public Use
  Company Number: US-THERAPEUTICSMD-2019TMD01676

PATIENT
  Sex: Female
  Weight: 65.76 kg

DRUGS (4)
  1. IMVEXXY [Suspect]
     Active Substance: ESTRADIOL
     Indication: ATROPHIC VULVOVAGINITIS
     Dosage: 10 ?G BEFORE BED
     Route: 067
     Dates: start: 2019, end: 2019
  2. UNSPECIFIED MEDICATIONS [Concomitant]
     Active Substance: UNSPECIFIED INGREDIENT
  3. IMVEXXY [Suspect]
     Active Substance: ESTRADIOL
     Dosage: 10 ?G, 1X/WEEK BEFORE BED
     Route: 067
     Dates: start: 2019, end: 2019
  4. THYROID PILL [Concomitant]
     Dosage: IN THE MORNING

REACTIONS (11)
  - Decreased appetite [Unknown]
  - Insomnia [Not Recovered/Not Resolved]
  - Off label use [Recovered/Resolved]
  - Burning sensation [Not Recovered/Not Resolved]
  - Psychomotor hyperactivity [Recovering/Resolving]
  - Gastrointestinal disorder [Recovered/Resolved]
  - Abdominal pain [Recovered/Resolved]
  - Inflammation [Not Recovered/Not Resolved]
  - Headache [Unknown]
  - Agitation [Not Recovered/Not Resolved]
  - Vulvovaginal discomfort [Not Recovered/Not Resolved]

NARRATIVE: CASE EVENT DATE: 2019
